FAERS Safety Report 9425261 (Version 1)
Quarter: 2013Q3

REPORT INFORMATION
  Report Type: Spontaneous
  Country: GB (occurrence: None)
  Receive Date: 20130725
  Receipt Date: 20130725
  Transmission Date: 20140515
  Serious: Yes (Hospitalization, Other)
  Sender: FDA-Public Use
  Company Number: AUR-APL-2013-05993

PATIENT
  Age: 66 Year
  Sex: Female
  Weight: 66 kg

DRUGS (14)
  1. NAPROXEN [Suspect]
     Indication: ROTATOR CUFF SYNDROME
     Dosage: 1000 MG (500 MG, 2 IN 1 D), ORAL
     Route: 048
     Dates: start: 20121116, end: 20130109
  2. NAPROXEN [Suspect]
     Indication: PAIN
     Dosage: 1000 MG (500 MG, 2 IN 1 D), ORAL
     Route: 048
     Dates: start: 20121116, end: 20130109
  3. ALFACALCIDOL (ALFACALCIDOL) [Concomitant]
  4. AMLODIPINE (AMLODIPINE) [Concomitant]
  5. CELECOXIB (CELECOXIB) [Concomitant]
  6. CLOPIDOGREL (CLOPIDOGREL) [Concomitant]
  7. EZETIMIBE (EZETIMIBE) [Concomitant]
  8. FLUOXETINE (FLUOXETINE) [Concomitant]
  9. GLICLAZIDE (GLICLAZIDE) [Concomitant]
  10. LANSOPRAZOLE (LANSOPRAZOLE) [Concomitant]
  11. LISINOPRIL (LISINOPRIL) [Concomitant]
  12. METFORMIN (METFORMIN) [Concomitant]
  13. OMEPRAZOLE (OMEPRAZOLE) [Concomitant]
  14. PARACETAMOL (PARACETAMOL) [Concomitant]

REACTIONS (15)
  - Nausea [None]
  - Diarrhoea [None]
  - Abdominal pain [None]
  - Asthenia [None]
  - Decreased appetite [None]
  - Pruritus generalised [None]
  - Fatigue [None]
  - Dyspnoea exertional [None]
  - Tremor [None]
  - Pallor [None]
  - Pain in extremity [None]
  - Occult blood positive [None]
  - Haemoglobin decreased [None]
  - Change of bowel habit [None]
  - Gastritis [None]
